FAERS Safety Report 6656122-8 (Version None)
Quarter: 2010Q1

REPORT INFORMATION
  Report Type: 
  Country: None (occurrence: None)
  Receive Date: 20100329
  Receipt Date: 20100319
  Transmission Date: 20100710
  Serious: Yes (Other)
  Sender: FDA-Public Use
  Company Number: B0643374A

PATIENT
  Age: 6 Year
  Sex: Female

DRUGS (3)
  1. RETAPAMULIN [Suspect]
     Indication: DERMATITIS
     Route: 061
  2. ANTIBIOTICS [Concomitant]
     Route: 048
  3. PREDNISONE TAB [Concomitant]
     Route: 048

REACTIONS (4)
  - DERMATITIS [None]
  - DERMATITIS BULLOUS [None]
  - DERMATITIS CONTACT [None]
  - SKIN TEST POSITIVE [None]
